FAERS Safety Report 7536223-2 (Version None)
Quarter: 2011Q2

REPORT INFORMATION
  Report Type: 
  Country: None (occurrence: None)
  Receive Date: 20110602
  Receipt Date: 20110520
  Transmission Date: 20111010
  Serious: Yes (Other)
  Sender: FDA-Public Use
  Company Number: 1000021215

PATIENT
  Age: 66 Year
  Sex: Male

DRUGS (1)
  1. ROFLUMILAST (ROFLUMILAST) (500 MICROGRAM, TABLETS) [Suspect]
     Indication: CHRONIC OBSTRUCTIVE PULMONARY DISEASE
     Dosage: 500 MCG (500 MCG, 1 IN 1 D), ORAL
     Route: 048
     Dates: start: 20110321

REACTIONS (6)
  - EYE DISORDER [None]
  - HEADACHE [None]
  - MYALGIA [None]
  - DIZZINESS [None]
  - JOINT SWELLING [None]
  - CONSTIPATION [None]
